FAERS Safety Report 19464500 (Version 2)
Quarter: 2021Q2

REPORT INFORMATION
  Report Type: Spontaneous
  Country: US (occurrence: US)
  Receive Date: 20210626
  Receipt Date: 20210626
  Transmission Date: 20210717
  Serious: No
  Sender: FDA-Public Use
  Company Number: NVSC2021US139549

PATIENT
  Sex: Female

DRUGS (4)
  1. MINIVELLE [Suspect]
     Active Substance: ESTRADIOL
     Indication: MENOPAUSE
     Dosage: 0.05 MG (START DATE: 10 YEARS AGO)
     Route: 062
  2. TETRACYCLINE [Concomitant]
     Active Substance: TETRACYCLINE
     Indication: ROSACEA
     Dosage: UNK (START DATE: VERY RECENTLY)
     Route: 048
  3. VIVELLE?DOT [Suspect]
     Active Substance: ESTRADIOL
     Indication: PRODUCT USED FOR UNKNOWN INDICATION
     Dosage: UNK
     Route: 065
  4. SOOLANTRA [Concomitant]
     Active Substance: IVERMECTIN
     Indication: ROSACEA
     Dosage: UNK (START DATE: VERY RECENTLY)
     Route: 061

REACTIONS (1)
  - Therapeutic response changed [Unknown]
